FAERS Safety Report 4392064-9 (Version None)
Quarter: 2004Q3

REPORT INFORMATION
  Report Type: 
  Country: None (occurrence: None)
  Receive Date: 20040702
  Receipt Date: 20040622
  Transmission Date: 20050211
  Serious: Yes (Death)
  Sender: FDA-Public Use
  Company Number: US-JNJFOC-20040606419

PATIENT
  Age: 69 Year
  Sex: Female

DRUGS (3)
  1. REMICADE [Suspect]
     Indication: CROHN'S DISEASE
     Dosage: 5 MG/KG, 4 IN , INTRAVENOUS
     Route: 042
     Dates: start: 20040301
  2. PENTASA [Concomitant]
  3. ANTIHYPERTENSIVE (ANTIHYPERTENSIVES) [Concomitant]

REACTIONS (2)
  - CARDIAC ARREST [None]
  - SMALL INTESTINAL HAEMORRHAGE [None]
